FAERS Safety Report 16364170 (Version 6)
Quarter: 2025Q3

REPORT INFORMATION
  Report Type: Spontaneous
  Country: EU (occurrence: EU)
  Receive Date: 20190528
  Receipt Date: 20250729
  Transmission Date: 20251020
  Serious: Yes (Death, Hospitalization, Other)
  Sender: NOVARTIS
  Company Number: PHHY2019NL121385

PATIENT
  Age: 9 Year
  Sex: Male

DRUGS (54)
  1. BASILIXIMAB [Suspect]
     Active Substance: BASILIXIMAB
     Indication: Immunosuppressant drug therapy
     Route: 065
  2. BASILIXIMAB [Suspect]
     Active Substance: BASILIXIMAB
     Indication: Immunosuppression
  3. PREDNISONE [Suspect]
     Active Substance: PREDNISONE
     Indication: Prophylaxis against transplant rejection
     Dosage: 0.3 MG/KG, QD
     Route: 065
  4. PREDNISONE [Suspect]
     Active Substance: PREDNISONE
     Indication: Immunosuppressant drug therapy
     Route: 065
  5. PREDNISONE [Suspect]
     Active Substance: PREDNISONE
     Indication: Prophylaxis against graft versus host disease
  6. FLUDARABINE [Suspect]
     Active Substance: FLUDARABINE PHOSPHATE
     Indication: Immunosuppressant drug therapy
     Route: 065
  7. CYCLOPHOSPHAMIDE [Suspect]
     Active Substance: CYCLOPHOSPHAMIDE
     Indication: Immunosuppressant drug therapy
     Dosage: 50 MG/KG, QD (50 MG/KG ONCE, 1 {TOTAL} )
     Route: 065
  8. CYCLOPHOSPHAMIDE [Suspect]
     Active Substance: CYCLOPHOSPHAMIDE
     Indication: Bone marrow conditioning regimen
  9. TACROLIMUS [Suspect]
     Active Substance: TACROLIMUS
     Indication: Immunosuppressant drug therapy
     Route: 065
  10. MYCOPHENOLATE MOFETIL [Suspect]
     Active Substance: MYCOPHENOLATE MOFETIL
     Indication: Immunosuppressant drug therapy
     Route: 065
  11. MYCOPHENOLATE MOFETIL [Suspect]
     Active Substance: MYCOPHENOLATE MOFETIL
     Indication: Prophylaxis against transplant rejection
  12. MYCOPHENOLATE MOFETIL [Suspect]
     Active Substance: MYCOPHENOLATE MOFETIL
     Indication: Prophylaxis against graft versus host disease
  13. THYMOCYTE IMMUNE GLOBULIN NOS [Suspect]
     Active Substance: THYMOCYTE IMMUNE GLOBULIN NOS
     Indication: Bone marrow conditioning regimen
     Route: 065
  14. ALKERAN [Suspect]
     Active Substance: MELPHALAN
     Indication: Immunosuppression
     Dosage: 70 MG/M2, QD
     Route: 065
  15. ALKERAN [Suspect]
     Active Substance: MELPHALAN
     Indication: Immunosuppression
  16. ALEMTUZUMAB [Suspect]
     Active Substance: ALEMTUZUMAB
     Indication: Bone marrow conditioning regimen
     Route: 065
  17. ALEMTUZUMAB [Suspect]
     Active Substance: ALEMTUZUMAB
     Indication: Bone marrow conditioning regimen
     Route: 065
  18. TREOSULFAN [Suspect]
     Active Substance: TREOSULFAN
     Indication: Immunosuppressant drug therapy
     Route: 065
  19. TREOSULFAN [Suspect]
     Active Substance: TREOSULFAN
     Indication: Immunosuppression
  20. MELPHALAN [Suspect]
     Active Substance: MELPHALAN
     Indication: Immunosuppression
     Route: 065
  21. MELPHALAN [Suspect]
     Active Substance: MELPHALAN
     Dosage: 70 MG/M2 (DAY 1)
     Route: 065
  22. POLYMYXIN [Concomitant]
     Active Substance: POLYMYXIN
     Indication: Infection prophylaxis
     Route: 065
  23. POLYMYXIN [Concomitant]
     Active Substance: POLYMYXIN
     Route: 065
  24. AMPHOTERICIN B [Concomitant]
     Active Substance: AMPHOTERICIN B
     Indication: Infection prophylaxis
     Route: 065
  25. PENTAMIDINE [Concomitant]
     Active Substance: PENTAMIDINE
     Indication: Infection prophylaxis
     Route: 055
  26. PENTAMIDINE [Concomitant]
     Active Substance: PENTAMIDINE
     Route: 055
  27. PREDNISONE ACETATE [Concomitant]
     Active Substance: PREDNISONE ACETATE
     Indication: Prophylaxis against transplant rejection
     Route: 065
  28. PREDNISONE ACETATE [Concomitant]
     Active Substance: PREDNISONE ACETATE
     Route: 065
  29. DEFIBROTIDE [Concomitant]
     Active Substance: DEFIBROTIDE (BOVINE)
     Indication: Prophylaxis
     Route: 065
  30. DEFIBROTIDE [Concomitant]
     Active Substance: DEFIBROTIDE (BOVINE)
     Route: 065
  31. VALACYCLOVIR HYDROCHLORIDE [Concomitant]
     Active Substance: VALACYCLOVIR HYDROCHLORIDE
     Indication: Product used for unknown indication
     Route: 065
  32. VALACYCLOVIR HYDROCHLORIDE [Concomitant]
     Active Substance: VALACYCLOVIR HYDROCHLORIDE
     Route: 065
  33. URSODIOL [Concomitant]
     Active Substance: URSODIOL
     Indication: Product used for unknown indication
     Route: 065
  34. URSODIOL [Concomitant]
     Active Substance: URSODIOL
     Route: 065
  35. CHENODIOL [Concomitant]
     Active Substance: CHENODIOL
     Indication: Product used for unknown indication
     Route: 065
  36. CHENODIOL [Concomitant]
     Active Substance: CHENODIOL
     Route: 065
  37. NEOMYCIN [Concomitant]
     Active Substance: NEOMYCIN
     Indication: Product used for unknown indication
     Route: 065
  38. NEOMYCIN [Concomitant]
     Active Substance: NEOMYCIN
     Route: 065
  39. HEMATIN [Concomitant]
     Active Substance: HEMATIN
     Indication: Product used for unknown indication
     Route: 065
  40. HEMATIN [Concomitant]
     Active Substance: HEMATIN
     Route: 065
  41. FLUDARABINE [Concomitant]
     Active Substance: FLUDARABINE PHOSPHATE
     Indication: Product used for unknown indication
     Route: 065
  42. FLUDARABINE [Concomitant]
     Active Substance: FLUDARABINE PHOSPHATE
     Route: 065
  43. CYCLOPHOSPHAMIDE [Concomitant]
     Active Substance: CYCLOPHOSPHAMIDE
     Indication: Product used for unknown indication
     Route: 065
  44. CYCLOPHOSPHAMIDE [Concomitant]
     Active Substance: CYCLOPHOSPHAMIDE
     Route: 065
  45. TREOSULFAN [Concomitant]
     Active Substance: TREOSULFAN
     Indication: Product used for unknown indication
     Route: 065
  46. TREOSULFAN [Concomitant]
     Active Substance: TREOSULFAN
     Route: 065
  47. THYMOGLOBULIN [Concomitant]
     Active Substance: LAPINE T-LYMPHOCYTE IMMUNE GLOBULIN
     Indication: Product used for unknown indication
     Route: 065
  48. THYMOGLOBULIN [Concomitant]
     Active Substance: LAPINE T-LYMPHOCYTE IMMUNE GLOBULIN
     Route: 065
  49. ALEMTUZUMAB [Concomitant]
     Active Substance: ALEMTUZUMAB
     Indication: Product used for unknown indication
     Route: 065
  50. ALEMTUZUMAB [Concomitant]
     Active Substance: ALEMTUZUMAB
     Route: 065
  51. Immunoglobulin [Concomitant]
     Indication: Infection prophylaxis
     Route: 042
  52. Immunoglobulin [Concomitant]
     Route: 042
  53. MYCOPHENOLATE MOFETIL [Concomitant]
     Active Substance: MYCOPHENOLATE MOFETIL
     Indication: Immunosuppressant drug therapy
     Route: 065
  54. MYCOPHENOLATE MOFETIL [Concomitant]
     Active Substance: MYCOPHENOLATE MOFETIL
     Indication: Prophylaxis against graft versus host disease
     Route: 065

REACTIONS (23)
  - Varicella zoster virus infection [Fatal]
  - Herpes zoster disseminated [Fatal]
  - Respiratory failure [Fatal]
  - Multiple organ dysfunction syndrome [Fatal]
  - Retinitis [Fatal]
  - Optic neuritis [Fatal]
  - Herpes zoster [Fatal]
  - Cytomegalovirus infection [Fatal]
  - Staphylococcal skin infection [Unknown]
  - Staphylococcal scalded skin syndrome [Unknown]
  - Human bocavirus infection [Unknown]
  - Gastroenteritis viral [Unknown]
  - Adenovirus infection [Unknown]
  - Vanishing bile duct syndrome [Recovering/Resolving]
  - Varicella virus test positive [Unknown]
  - Lymphopenia [Unknown]
  - Dehydration [Unknown]
  - Ear infection [Unknown]
  - Gastrointestinal infection [Unknown]
  - Renal failure [Unknown]
  - Anaphylactic shock [Recovered/Resolved]
  - Visual impairment [Unknown]
  - Off label use [Unknown]
